FAERS Safety Report 6292291-X (Version None)
Quarter: 2009Q3

REPORT INFORMATION
  Report Type: 
  Country: None (occurrence: None)
  Receive Date: 20090731
  Receipt Date: 20090721
  Transmission Date: 20100115
  Serious: Yes (Other)
  Sender: FDA-Public Use
  Company Number: GB-ROCHE-639010

PATIENT
  Sex: Female
  Weight: 65 kg

DRUGS (2)
  1. ROACCUTANE [Suspect]
     Route: 048
     Dates: start: 20090213, end: 20090508
  2. DIANETTE [Concomitant]
     Indication: CONTRACEPTION
     Dosage: INDICATION REPORTED AS: CONTRACEPTION PREVIOUSLY FOR ACNE

REACTIONS (1)
  - ALANINE AMINOTRANSFERASE INCREASED [None]
